FAERS Safety Report 9880677 (Version 1)
Quarter: 2014Q1

REPORT INFORMATION
  Report Type: Spontaneous
  Country: IR (occurrence: None)
  Receive Date: 20140205
  Receipt Date: 20140205
  Transmission Date: 20141002
  Serious: Yes (Other)
  Sender: FDA-Public Use
  Company Number: CO-OR-IR-2014-006

PATIENT
  Age: 47 Year
  Sex: Male

DRUGS (2)
  1. PREDNISOLONE [Suspect]
     Indication: GLOMERULONEPHRITIS RAPIDLY PROGRESSIVE
     Route: 048
  2. METHYLPREDNISOLONE [Suspect]
     Indication: GLOMERULONEPHRITIS RAPIDLY PROGRESSIVE
     Route: 042

REACTIONS (8)
  - Zygomycosis [None]
  - Diabetic ketoacidosis [None]
  - Cerebral infarction [None]
  - Necrosis [None]
  - Hyperglycaemia [None]
  - Cerebral fungal infection [None]
  - Fungal rhinitis [None]
  - Eye infection fungal [None]
